FAERS Safety Report 11301854 (Version 1)
Quarter: 2015Q3

REPORT INFORMATION
  Report Type: Spontaneous
  Country: US (occurrence: US)
  Receive Date: 20150722
  Receipt Date: 20150722
  Transmission Date: 20151125
  Serious: No
  Sender: FDA-Public Use
  Company Number: US-ELI_LILLY_AND_COMPANY-US200901003662

PATIENT
  Sex: Female

DRUGS (2)
  1. HUMATROPE [Suspect]
     Active Substance: SOMATROPIN
     Dosage: 0.1 MG, DAILY (1/D)
     Dates: start: 20090117
  2. HUMATROPE [Suspect]
     Active Substance: SOMATROPIN
     Dosage: 0.2 MG, DAILY (1/D)
     Dates: start: 20090112, end: 20090116

REACTIONS (3)
  - Blood pressure increased [Recovered/Resolved]
  - Weight increased [Recovered/Resolved]
  - Oedema [Recovered/Resolved]

NARRATIVE: CASE EVENT DATE: 20090112
